FAERS Safety Report 6177738-1 (Version None)
Quarter: 2009Q2

REPORT INFORMATION
  Report Type: 
  Country: None (occurrence: None)
  Receive Date: 20090501
  Receipt Date: 20090501
  Transmission Date: 20091009
  Serious: No
  Sender: FDA-Public Use
  Company Number: None

PATIENT
  Age: 40 Year
  Sex: Male
  Weight: 134.3 kg

DRUGS (1)
  1. VENLAFAXINE HCL [Suspect]
     Indication: POST-TRAUMATIC STRESS DISORDER
     Dosage: 225 MG EVERY DAY PO
     Route: 048
     Dates: start: 20090316, end: 20090420

REACTIONS (8)
  - AGGRESSION [None]
  - AGITATION [None]
  - ANGER [None]
  - DEPRESSION [None]
  - FATIGUE [None]
  - INSOMNIA [None]
  - IRRITABILITY [None]
  - PRODUCT SUBSTITUTION ISSUE [None]
